FAERS Safety Report 10237186 (Version 1)
Quarter: 2014Q1

REPORT INFORMATION
  Report Type: Spontaneous
  Country: US (occurrence: None)
  Receive Date: 20140306
  Receipt Date: 20140306
  Transmission Date: 20141002
  Serious: Yes (Hospitalization, Other)
  Sender: FDA-Public Use
  Company Number: 163-21880-13124983

PATIENT
  Age: 59 Year
  Sex: Female

DRUGS (29)
  1. REVLIMID [Suspect]
     Indication: NON-HODGKIN^S LYMPHOMA
     Route: 048
     Dates: start: 20130913
  2. LIDOCAINE (LIDOCAINE) [Concomitant]
  3. NOVOLOG (INSULIN ASPART) [Concomitant]
  4. AMERGE (NARATRIPTAN HYDROCHLORIDE) [Concomitant]
  5. LEVOTHYROXINE [Concomitant]
  6. TESSALON (BENZONATATE) [Concomitant]
  7. MULTIVITAMINS [Concomitant]
  8. PROZAC (FLUOXETINE HYDROCHLORIDE) [Concomitant]
  9. MIRALAX (MACROGOL) [Concomitant]
  10. BENADRYL (DIPHENHYDRAMINE HYDROCHLORIDE) [Concomitant]
  11. MUCINEX (GUAIFENESIN) [Concomitant]
  12. FLEXERIL (CYCLOBENZAPRINE HYDROCHLORIDE) [Concomitant]
  13. RISPERDAL [Concomitant]
  14. PROVA (PROVATRIPTAN SUCCINATE MONOHYDRATE) [Concomitant]
  15. MS CONTIN (MORPHIN SULFATE) [Concomitant]
  16. CHOLECALCIFEROL [Concomitant]
  17. POTASSIUM CHLORIDE [Concomitant]
  18. FRAGMIN (HEPARIN-FRACTION, SODIUM SALT) [Concomitant]
  19. PHENERGAN (PROMETHAZINE HYDROCHLORIDE) [Concomitant]
  20. PEPCID (FAMOTIDINE) [Concomitant]
  21. REQUIP (ROPINIROLE HYDROCHLORIDE) [Concomitant]
  22. PEPCID (FAMOTIDINE) [Concomitant]
  23. REQUIP (ROPINIROLE HYDROCHLORIDE) [Concomitant]
  24. MORPHINE SULFATE (MORPHINE SULFATE) [Concomitant]
  25. LORATADINE [Concomitant]
  26. SUDAFED (PSEUDOEPHEDRINE HYDROCHLORIDE) [Concomitant]
  27. LANTUS (INSULIN GLARGINE) [Concomitant]
  28. NADOLOL [Concomitant]
  29. LORAZEPAM [Concomitant]

REACTIONS (1)
  - Pulmonary sepsis [None]
